FAERS Safety Report 19841461 (Version 1)
Quarter: 2021Q3

REPORT INFORMATION
  Report Type: Spontaneous
  Country: MY (occurrence: MY)
  Receive Date: 20210915
  Receipt Date: 20210915
  Transmission Date: 20211014
  Serious: Yes (Hospitalization, Other)
  Sender: FDA-Public Use
  Company Number: MY-B.I. PHARMACEUTICALS,INC./RIDGEFIELD-2021-BI-121575

PATIENT
  Age: 63 Year
  Sex: Male
  Weight: 60 kg

DRUGS (1)
  1. JARDIANCE [Suspect]
     Active Substance: EMPAGLIFLOZIN
     Indication: DIABETES MELLITUS
     Route: 048
     Dates: start: 202108, end: 20210815

REACTIONS (9)
  - Metabolic acidosis [Unknown]
  - Acute kidney injury [Unknown]
  - Tachypnoea [Unknown]
  - Chronic kidney disease [Unknown]
  - Pneumonia [Unknown]
  - Septic shock [Unknown]
  - Haematuria [Unknown]
  - Urosepsis [Recovered/Resolved]
  - Klebsiella infection [Unknown]

NARRATIVE: CASE EVENT DATE: 202108
